FAERS Safety Report 11787783 (Version 1)
Quarter: 2015Q4

REPORT INFORMATION
  Report Type: Spontaneous
  Country: US (occurrence: US)
  Receive Date: 20151130
  Receipt Date: 20151130
  Transmission Date: 20160305
  Serious: No
  Sender: FDA-Public Use
  Company Number: ALCN2015US007434

PATIENT
  Age: 52 Year
  Sex: Male
  Weight: 72.56 kg

DRUGS (1)
  1. TOBRAMYCIN. [Suspect]
     Active Substance: TOBRAMYCIN
     Indication: EYE INFECTION
     Dosage: 2-3 GTT, QID
     Route: 047
     Dates: start: 20151115, end: 20151118

REACTIONS (4)
  - Drug ineffective [Not Recovered/Not Resolved]
  - Foreign body sensation in eyes [Not Recovered/Not Resolved]
  - Off label use [Not Recovered/Not Resolved]
  - Eye pain [Not Recovered/Not Resolved]

NARRATIVE: CASE EVENT DATE: 20151115
